FAERS Safety Report 7321781-3 (Version None)
Quarter: 2011Q1

REPORT INFORMATION
  Report Type: 
  Country: None (occurrence: None)
  Receive Date: 20110228
  Receipt Date: 20110217
  Transmission Date: 20110831
  Serious: Yes (Other)
  Sender: FDA-Public Use
  Company Number: US-ASTRAZENECA-2011SE09307

PATIENT
  Age: 62 Year
  Sex: Male

DRUGS (2)
  1. SINGULAIR [Concomitant]
  2. SEROQUEL [Suspect]
     Indication: SCHIZOPHRENIA
     Route: 048
     Dates: start: 20050101

REACTIONS (4)
  - APHASIA [None]
  - FALL [None]
  - LOSS OF CONSCIOUSNESS [None]
  - WEIGHT DECREASED [None]
